FAERS Safety Report 17465200 (Version 3)
Quarter: 2021Q1

REPORT INFORMATION
  Report Type: Spontaneous
  Country: JP (occurrence: JP)
  Receive Date: 20200226
  Receipt Date: 20210303
  Transmission Date: 20210419
  Serious: Yes (Death, Hospitalization, Other)
  Sender: FDA-Public Use
  Company Number: JP-009507513-2002JPN002341J

PATIENT
  Age: 72 Year
  Sex: Male
  Weight: 50 kg

DRUGS (5)
  1. KEYTRUDA [Suspect]
     Active Substance: PEMBROLIZUMAB
     Indication: BLADDER CANCER STAGE IV
     Dosage: 200 MILLIGRAM, Q3W
     Route: 041
     Dates: start: 20200129, end: 20200129
  2. LOXOPROFEN [Suspect]
     Active Substance: LOXOPROFEN
     Indication: CANCER PAIN
     Dosage: 60 MILLIGRAM, TID
     Route: 048
     Dates: start: 20200121, end: 20200205
  3. LIXIANA [Concomitant]
     Active Substance: EDOXABAN TOSYLATE
     Indication: PULMONARY EMBOLISM
     Dosage: 30 MILLIGRAM, QD
     Route: 048
     Dates: start: 20190805, end: 20200206
  4. MYSLEE [Concomitant]
     Active Substance: ZOLPIDEM TARTRATE
     Dosage: 10 MILLIGRAM, QD
     Route: 048
  5. REBAMIPIDE [Concomitant]
     Active Substance: REBAMIPIDE
     Indication: CANCER PAIN
     Dosage: 100 MILLIGRAM, TID
     Route: 048
     Dates: start: 20200121

REACTIONS (3)
  - Lymphangiosis carcinomatosa [Fatal]
  - Malignant neoplasm progression [Fatal]
  - Gastric ulcer haemorrhage [Recovered/Resolved]

NARRATIVE: CASE EVENT DATE: 202002
